FAERS Safety Report 10063469 (Version 1)
Quarter: 2014Q1

REPORT INFORMATION
  Report Type: Spontaneous
  Country: US (occurrence: None)
  Receive Date: 20140327
  Receipt Date: 20140327
  Transmission Date: 20141002
  Serious: Yes (Other)
  Sender: FDA-Public Use
  Company Number: GR 13-016

PATIENT
  Sex: Female

DRUGS (1)
  1. CRAB (CALLINECTES SPP.) ALLERGENIC EXTRACT 1:20 W/V [Suspect]
     Indication: HYPERSENSITIVITY

REACTIONS (1)
  - Urticaria [None]
